FAERS Safety Report 7286814-1 (Version None)
Quarter: 2011Q1

REPORT INFORMATION
  Report Type: 
  Country: None (occurrence: None)
  Receive Date: 20110210
  Receipt Date: 20101202
  Transmission Date: 20110831
  Serious: Yes (Hospitalization)
  Sender: FDA-Public Use
  Company Number: CA-BAYER-201040270NA

PATIENT
  Sex: Female

DRUGS (1)
  1. CIPRO [Suspect]
     Indication: PRODUCT USED FOR UNKNOWN INDICATION
     Route: 065

REACTIONS (53)
  - ASTHENIA [None]
  - BLOOD CHOLESTEROL INCREASED [None]
  - FACE OEDEMA [None]
  - FLUSHING [None]
  - HYPERTENSION [None]
  - IMPAIRED HEALING [None]
  - TENDONITIS [None]
  - RENAL PAIN [None]
  - ANGIOEDEMA [None]
  - CHEST PAIN [None]
  - CYSTITIS [None]
  - DEPERSONALISATION [None]
  - INSOMNIA [None]
  - URETHRAL HAEMORRHAGE [None]
  - VISION BLURRED [None]
  - VISUAL ACUITY REDUCED [None]
  - ARRHYTHMIA [None]
  - ARTHRALGIA [None]
  - CHILLS [None]
  - NECK PAIN [None]
  - BLOOD POTASSIUM ABNORMAL [None]
  - AGRANULOCYTOSIS [None]
  - DEPRESSION [None]
  - DIZZINESS [None]
  - EAR DISCOMFORT [None]
  - SOMNOLENCE [None]
  - TACHYCARDIA [None]
  - APNOEA [None]
  - DRY EYE [None]
  - FALL [None]
  - HAEMOLYTIC ANAEMIA [None]
  - MALAISE [None]
  - PHOTOSENSITIVITY REACTION [None]
  - ANGINA PECTORIS [None]
  - HYPOAESTHESIA [None]
  - MUSCLE TIGHTNESS [None]
  - PARAESTHESIA [None]
  - PYREXIA [None]
  - TREMOR [None]
  - BLOOD TRIGLYCERIDES INCREASED [None]
  - CARPAL TUNNEL SYNDROME [None]
  - DEAFNESS [None]
  - BLOOD POTASSIUM INCREASED [None]
  - DYSGEUSIA [None]
  - DYSPNOEA [None]
  - JOINT STIFFNESS [None]
  - LETHARGY [None]
  - LIGAMENT RUPTURE [None]
  - PALPITATIONS [None]
  - RESPIRATORY DISTRESS [None]
  - TINNITUS [None]
  - URINARY RETENTION [None]
  - ANAEMIA [None]
